FAERS Safety Report 15120315 (Version 3)
Quarter: 2018Q3

REPORT INFORMATION
  Report Type: Spontaneous
  Country: US (occurrence: US)
  Receive Date: 20180709
  Receipt Date: 20180924
  Transmission Date: 20181010
  Serious: No
  Sender: FDA-Public Use
  Company Number: PHEH2018US027462

PATIENT
  Sex: Female

DRUGS (2)
  1. AFINITOR [Suspect]
     Active Substance: EVEROLIMUS
     Indication: RENAL CANCER
     Dosage: 5 MG, QD
     Route: 048
  2. LENVIMA [Suspect]
     Active Substance: LENVATINIB
     Indication: RENAL CANCER
     Dosage: 8 MG, QD
     Route: 048

REACTIONS (7)
  - Rash pruritic [Recovering/Resolving]
  - Fatigue [Unknown]
  - Vomiting [Unknown]
  - Asthenia [Recovering/Resolving]
  - Nausea [Unknown]
  - Oral mucosal blistering [Recovered/Resolved]
  - Abdominal discomfort [Recovering/Resolving]
